FAERS Safety Report 7531608-2 (Version None)
Quarter: 2011Q2

REPORT INFORMATION
  Report Type: 
  Country: None (occurrence: None)
  Receive Date: 20110608
  Receipt Date: 20110601
  Transmission Date: 20111010
  Serious: Yes (Hospitalization)
  Sender: FDA-Public Use
  Company Number: US-ALEXION-A201100579

PATIENT
  Sex: Male

DRUGS (17)
  1. REGULAR INSULIN [Concomitant]
     Dosage: 6 IU, QD
     Route: 058
  2. LANTUS [Concomitant]
     Dosage: 10 IU, QD
     Route: 058
  3. PRILOSEC [Concomitant]
     Dosage: 10 MG, QD
     Route: 048
  4. ENALAPRIL MALEATE [Concomitant]
     Dosage: 10 MG, QD
     Route: 048
  5. METFORMIN HCL [Concomitant]
     Dosage: 500 MG, BID
     Route: 048
  6. FLOMAX [Concomitant]
     Dosage: 0.4 MG, QD
     Route: 048
  7. SOLIRIS [Suspect]
     Indication: PAROXYSMAL NOCTURNAL HAEMOGLOBINURIA
     Dosage: UNK
     Route: 042
     Dates: start: 20101025, end: 20101101
  8. ENALAPRIL MALEATE [Concomitant]
     Dosage: 20 MG, QD
     Route: 048
  9. NORCO [Concomitant]
     Indication: BACK PAIN
     Dosage: 10/325 MG, Q4HR, PRN
  10. SOLIRIS [Suspect]
     Dosage: UNK
     Dates: start: 20101119, end: 20110316
  11. XANAX [Concomitant]
     Dosage: 0.5 MG, QD
     Route: 048
  12. LUPRON [Concomitant]
     Indication: PROSTATE CANCER
     Dosage: UNK
  13. CALCIUM CITRATE W/VITAMIN D NOS [Concomitant]
     Dosage: 315 MG/200, QD
     Route: 048
  14. PREDNISONE [Concomitant]
     Indication: PAROXYSMAL NOCTURNAL HAEMOGLOBINURIA
     Dosage: 60 MG, QD
     Route: 048
  15. FOLIC ACID [Concomitant]
     Dosage: 1 MG, QD
     Route: 048
  16. PAXIL [Concomitant]
     Dosage: 20 MG, QD
     Route: 048
  17. METFORMIN HCL [Concomitant]
     Dosage: 500 MG, QD
     Route: 048

REACTIONS (11)
  - CONDITION AGGRAVATED [None]
  - GENERAL PHYSICAL HEALTH DETERIORATION [None]
  - RENAL MASS [None]
  - DEEP VEIN THROMBOSIS [None]
  - PAROXYSMAL NOCTURNAL HAEMOGLOBINURIA [None]
  - BLADDER CANCER [None]
  - HAEMOLYTIC ANAEMIA [None]
  - RENAL FAILURE ACUTE [None]
  - ABDOMINAL PAIN [None]
  - NO THERAPEUTIC RESPONSE [None]
  - RENAL CYST [None]
